FAERS Safety Report 25176765 (Version 3)
Quarter: 2025Q2

REPORT INFORMATION
  Report Type: Spontaneous
  Country: US (occurrence: US)
  Receive Date: 20250409
  Receipt Date: 20250519
  Transmission Date: 20250717
  Serious: No
  Sender: ALEXION PHARMACEUTICALS
  Company Number: US-AstraZeneca-CH-00845148AP

PATIENT

DRUGS (1)
  1. BYDUREON BCISE [Suspect]
     Active Substance: EXENATIDE
     Route: 065

REACTIONS (7)
  - Incorrect dose administered by device [Unknown]
  - Incorrect dose administered [Unknown]
  - Needle issue [Unknown]
  - Eye disorder [Unknown]
  - Product storage error [Unknown]
  - Product use issue [Unknown]
  - Device leakage [Unknown]
